FAERS Safety Report 4531950-3 (Version None)
Quarter: 2004Q4

REPORT INFORMATION
  Report Type: 
  Country: None (occurrence: None)
  Receive Date: 20041217
  Receipt Date: 20041207
  Transmission Date: 20050328
  Serious: Yes (Death)
  Sender: FDA-Public Use
  Company Number: A-CH2004-07624

PATIENT
  Age: 26 Year
  Sex: Female

DRUGS (1)
  1. TRACLEER [Suspect]
     Indication: PULMONARY HYPERTENSION
     Dosage: 62.5 MG, BID, ORAL
     Route: 048
     Dates: start: 20031001, end: 20040801

REACTIONS (3)
  - COMPLICATIONS OF TRANSPLANT SURGERY [None]
  - MULTI-ORGAN FAILURE [None]
  - RESPIRATORY FAILURE [None]
